FAERS Safety Report 9205901 (Version 1)
Quarter: 2013Q2

REPORT INFORMATION
  Report Type: Spontaneous
  Country: US (occurrence: None)
  Receive Date: 20130401
  Receipt Date: 20130401
  Transmission Date: 20140414
  Serious: Yes (Death)
  Sender: FDA-Public Use
  Company Number: 1303-388

PATIENT
  Sex: Female

DRUGS (1)
  1. EYLEA [Suspect]

REACTIONS (1)
  - Death [None]
